FAERS Safety Report 18437060 (Version 1)
Quarter: 2020Q4

REPORT INFORMATION
  Report Type: Spontaneous
  Country: US (occurrence: US)
  Receive Date: 20201028
  Receipt Date: 20201028
  Transmission Date: 20210114
  Serious: No
  Sender: FDA-Public Use
  Company Number: US-PFIZER INC-2020416144

PATIENT
  Sex: Male

DRUGS (2)
  1. ZYRTEC [Interacting]
     Active Substance: CETIRIZINE HYDROCHLORIDE
     Indication: SINUS DISORDER
     Dosage: UNK
  2. PROTONIX [Suspect]
     Active Substance: PANTOPRAZOLE SODIUM
     Indication: CHEST DISCOMFORT
     Dosage: 20 MG

REACTIONS (2)
  - Drug ineffective [Unknown]
  - Inhibitory drug interaction [Unknown]
